FAERS Safety Report 19823809 (Version 3)
Quarter: 2022Q1

REPORT INFORMATION
  Report Type: Report from Study
  Country: JP (occurrence: JP)
  Receive Date: 20210914
  Receipt Date: 20220322
  Transmission Date: 20220423
  Serious: Yes (Death)
  Sender: FDA-Public Use
  Company Number: JP-ABBVIE-21K-087-4077535-00

PATIENT
  Age: 63 Year
  Sex: Female
  Weight: 45 kg

DRUGS (44)
  1. CARBIDOPA\LEVODOPA [Suspect]
     Active Substance: CARBIDOPA\LEVODOPA
     Indication: Parkinson^s disease
     Dosage: 7.0 ML, CD: 2.6 ML/HR X 14 HR, ED 1.0 ML/UNIT X2
     Route: 050
     Dates: start: 20161019, end: 20161206
  2. CARBIDOPA\LEVODOPA [Suspect]
     Active Substance: CARBIDOPA\LEVODOPA
     Dosage: MD: 7.0 ML, CD: 2.5 ML/HR X 14 HR, ED: 1.0 ML/UNIT X2
     Route: 050
     Dates: start: 20161207, end: 20161220
  3. CARBIDOPA\LEVODOPA [Suspect]
     Active Substance: CARBIDOPA\LEVODOPA
     Dosage: MD: 7.0 ML, CD: 2.3 ML/HR X 14 HR, ED: 1.0 ML/UNIT X2
     Route: 050
     Dates: start: 20161221, end: 20170101
  4. CARBIDOPA\LEVODOPA [Suspect]
     Active Substance: CARBIDOPA\LEVODOPA
     Dosage: MD: 7.0 ML, CD: 2.5 ML/HR X 14 HR, ED: 1.0 ML/UNIT X2
     Route: 050
     Dates: start: 20170102, end: 20170211
  5. CARBIDOPA\LEVODOPA [Suspect]
     Active Substance: CARBIDOPA\LEVODOPA
     Dosage: 7.0 ML, CD: 2.4 ML/HR X 14 HR, ED: 1.0 ML/UNIT X2
     Route: 050
     Dates: start: 20170212, end: 20170228
  6. CARBIDOPA\LEVODOPA [Suspect]
     Active Substance: CARBIDOPA\LEVODOPA
     Dosage: MD: 7.0 ML, CD: 2.3 ML/HR X 14 HR, ED: 1.0 ML/UNIT X2
     Route: 050
     Dates: start: 20170301, end: 20170311
  7. CARBIDOPA\LEVODOPA [Suspect]
     Active Substance: CARBIDOPA\LEVODOPA
     Dosage: MD: 7.0 ML, CD: 2.4 ML/HR X 14 HR, ED: 1.0 ML/UNIT X2
     Route: 050
     Dates: start: 20170312, end: 20170411
  8. CARBIDOPA\LEVODOPA [Suspect]
     Active Substance: CARBIDOPA\LEVODOPA
     Dosage: MD: 7.5 ML, CD: 2.5 ML/HR X 14 HR, ED: 1.5 ML/UNIT X2
     Route: 050
     Dates: start: 20170412, end: 20170509
  9. CARBIDOPA\LEVODOPA [Suspect]
     Active Substance: CARBIDOPA\LEVODOPA
     Dosage: MD: 8.5 ML, CD: 2.4 ML/HR X 14 HR, ED: 1.8 ML/UNIT X2
     Route: 050
     Dates: start: 20170510, end: 20170523
  10. CARBIDOPA\LEVODOPA [Suspect]
     Active Substance: CARBIDOPA\LEVODOPA
     Dosage: MD: 8.5 ML, CD: 2.3 ML/HR X 14 HR, ED: 2.0 ML/UNIT X2
     Route: 050
     Dates: start: 20170524, end: 20170530
  11. CARBIDOPA\LEVODOPA [Suspect]
     Active Substance: CARBIDOPA\LEVODOPA
     Dosage: MD: 8.5 ML, CD: 2.1 ML/HR X 14 HR, ED: 2.0 ML/UNIT X2
     Route: 050
     Dates: start: 20170531, end: 20170620
  12. CARBIDOPA\LEVODOPA [Suspect]
     Active Substance: CARBIDOPA\LEVODOPA
     Dosage: MD: 8.5 ML, CD: 2.3 ML/HR X 14 HR, ED: 2.3 ML/UNIT X2
     Route: 050
     Dates: start: 20170621, end: 20170704
  13. CARBIDOPA\LEVODOPA [Suspect]
     Active Substance: CARBIDOPA\LEVODOPA
     Dosage: MD: 8.5 ML, CD: 2.8 ML/HR X 14 HR, ED: 2.5 ML/UNIT X
     Route: 050
     Dates: start: 20170705, end: 20170801
  14. CARBIDOPA\LEVODOPA [Suspect]
     Active Substance: CARBIDOPA\LEVODOPA
     Dosage: MD: 8.5 ML, CD: 2.6 ML/HR X 14 HR, ED: 2.0 ML/UNIT X2
     Route: 050
     Dates: start: 20170802, end: 20170806
  15. CARBIDOPA\LEVODOPA [Suspect]
     Active Substance: CARBIDOPA\LEVODOPA
     Dosage: MD: 8.5 ML, CD: 2.8 ML/HR X 14 HR, ED: 2.0 ML/UNIT X4
     Route: 050
     Dates: start: 20170807, end: 20170811
  16. CARBIDOPA\LEVODOPA [Suspect]
     Active Substance: CARBIDOPA\LEVODOPA
     Dosage: MD: 8.5 ML, CD: 2.7 ML/HR X 14 HR, ED: 2.0 ML/UNIT X4
     Route: 050
     Dates: start: 20170812, end: 20170812
  17. CARBIDOPA\LEVODOPA [Suspect]
     Active Substance: CARBIDOPA\LEVODOPA
     Dosage: MD: 8.5 ML, CD: 2.8 ML/HR X 14 HR, ED: 2.0 ML/UNIT X3
     Route: 050
     Dates: start: 20170813, end: 20170912
  18. CARBIDOPA\LEVODOPA [Suspect]
     Active Substance: CARBIDOPA\LEVODOPA
     Dosage: MD: 8.5 ML, CD: 2.8 ML/HR X 14 HR, ED: 3.0 ML/UNIT X2
     Route: 050
     Dates: start: 20170913, end: 20171017
  19. CARBIDOPA\LEVODOPA [Suspect]
     Active Substance: CARBIDOPA\LEVODOPA
     Dosage: MD: 8.5 ML, CD: 2.8 ML/HR X 14 HR, ED: 2.2 ML/UNIT X2
     Route: 050
     Dates: start: 20171018, end: 20171212
  20. CARBIDOPA\LEVODOPA [Suspect]
     Active Substance: CARBIDOPA\LEVODOPA
     Dosage: MD 8.5 ML, CD 2.3 ML/HR X 14 HRS, ED 2.1 ML X2
     Route: 050
     Dates: start: 20171213, end: 20180206
  21. CARBIDOPA\LEVODOPA [Suspect]
     Active Substance: CARBIDOPA\LEVODOPA
     Dosage: M D: 8.5 ML ?CD: 2.3 ML/HR X 16 HRS?ED: 2.2 ML/UNIT X 5 TIMES
     Route: 050
     Dates: start: 20180207, end: 20180306
  22. CARBIDOPA\LEVODOPA [Suspect]
     Active Substance: CARBIDOPA\LEVODOPA
     Dosage: MD 8.5 ML, CD 2.2 ML/HR X 16 HRS, ED 2.2 ML X2
     Route: 050
     Dates: start: 20180307, end: 20180424
  23. CARBIDOPA\LEVODOPA [Suspect]
     Active Substance: CARBIDOPA\LEVODOPA
     Dosage: MD 8.5 ML, CD 2.2 ML/HR X 16 HRS, ED 2.0 ML X2
     Route: 050
     Dates: start: 20180425, end: 20180522
  24. CARBIDOPA\LEVODOPA [Suspect]
     Active Substance: CARBIDOPA\LEVODOPA
     Dosage: MD 8.5 ML, CD 2.3 ML/HR X 16 HRS, ED 2.1 ML X4
     Route: 050
     Dates: start: 20180523, end: 20180619
  25. CARBIDOPA\LEVODOPA [Suspect]
     Active Substance: CARBIDOPA\LEVODOPA
     Dosage: MD 8.5 ML, CD 2.6 ML/HR X 16 HRS, ED 1.8 ML X4
     Route: 050
     Dates: start: 20180620, end: 20180718
  26. CARBIDOPA\LEVODOPA [Suspect]
     Active Substance: CARBIDOPA\LEVODOPA
     Dosage: MD 8.5 ML, CD 2.4 ML/HR X 17 HRS, ED 1.9 ML X4
     Route: 050
     Dates: start: 20180718, end: 20180907
  27. CARBIDOPA\LEVODOPA [Suspect]
     Active Substance: CARBIDOPA\LEVODOPA
     Dosage: MD 8.5 ML, D 2.4 ML/HR X 16 HRS, ED 1.8 ML X4
     Route: 050
     Dates: start: 20180908, end: 20181009
  28. CARBIDOPA\LEVODOPA [Suspect]
     Active Substance: CARBIDOPA\LEVODOPA
     Dosage: M D: 8.5 ML?CD: 2.5 ML/HR X 16HRS?ED: 1.7 ML/UNIT X 4 TIMES
     Route: 050
     Dates: start: 20181010
  29. AMANTADINE HYDROCHLORIDE [Concomitant]
     Active Substance: AMANTADINE HYDROCHLORIDE
     Indication: Parkinson^s disease
     Route: 048
     Dates: end: 20170620
  30. AMANTADINE HYDROCHLORIDE [Concomitant]
     Active Substance: AMANTADINE HYDROCHLORIDE
     Indication: Dyskinesia
     Route: 048
     Dates: start: 20170621
  31. ENTACAPONE [Concomitant]
     Active Substance: ENTACAPONE
     Indication: Parkinson^s disease
     Route: 048
     Dates: start: 20170302, end: 20170306
  32. ENTACAPONE [Concomitant]
     Active Substance: ENTACAPONE
     Indication: Therapeutic response shortened
     Route: 048
     Dates: start: 20170307, end: 20170424
  33. ENTACAPONE [Concomitant]
     Active Substance: ENTACAPONE
     Route: 048
     Dates: start: 20180425, end: 20180717
  34. ENTACAPONE [Concomitant]
     Active Substance: ENTACAPONE
     Route: 048
     Dates: start: 20180718
  35. BENSERAZIDE\LEVODOPA [Concomitant]
     Active Substance: BENSERAZIDE\LEVODOPA
     Indication: Parkinson^s disease
     Dosage: THE AMOUNT OF LEVODOPA CONVERTED TO 16-HOUR DOSE DURING DAYTIME WAS 650
     Route: 048
  36. LANSOPRAZOLE [Concomitant]
     Active Substance: LANSOPRAZOLE
     Indication: Prophylaxis
     Dates: end: 20171212
  37. DOMPERIDONE [Concomitant]
     Active Substance: DOMPERIDONE
     Indication: Prophylaxis
     Route: 048
  38. ETIZOLAM [Concomitant]
     Active Substance: ETIZOLAM
     Indication: Product used for unknown indication
     Route: 048
  39. CALCIUM CARBONATE [Concomitant]
     Active Substance: CALCIUM CARBONATE
     Indication: Product used for unknown indication
     Dosage: 2 DOSAGE FORMS
     Route: 048
  40. ESZOPICLONE [Concomitant]
     Active Substance: ESZOPICLONE
     Indication: Product used for unknown indication
     Route: 048
  41. TRAMADOL HYDROCHLORIDE AND ACETAMINOPHEN [Concomitant]
     Active Substance: ACETAMINOPHEN\TRAMADOL HYDROCHLORIDE
     Indication: Pain
     Dosage: PRN FOR PAIN AS REQUIRED
     Route: 048
     Dates: end: 20170121
  42. VITAMIN B COMPLEX [Concomitant]
     Active Substance: CYANOCOBALAMIN\DEXPANTHENOL\NIACINAMIDE\PYRIDOXINE HYDROCHLORIDE\RIBOFLAVIN 5^-PHOSPHATE SODIUM\THIA
     Indication: Product used for unknown indication
     Route: 048
     Dates: end: 20161123
  43. VITAMIN B COMPLEX [Concomitant]
     Active Substance: CYANOCOBALAMIN\DEXPANTHENOL\NIACINAMIDE\PYRIDOXINE HYDROCHLORIDE\RIBOFLAVIN 5^-PHOSPHATE SODIUM\THIA
     Route: 048
     Dates: start: 20161124
  44. L DOPA [Concomitant]
     Active Substance: LEVODOPA
     Indication: Parkinson^s disease
     Dosage: AS NEEDED
     Route: 048

REACTIONS (12)
  - Subdural haematoma [Fatal]
  - Device dislocation [Not Recovered/Not Resolved]
  - Device issue [Unknown]
  - Stoma site pain [Recovered/Resolved]
  - Constipation [Not Recovered/Not Resolved]
  - Dyskinesia [Not Recovered/Not Resolved]
  - Stoma site hypergranulation [Recovered/Resolved]
  - Insomnia [Not Recovered/Not Resolved]
  - Constipation [Not Recovered/Not Resolved]
  - Bezoar [Unknown]
  - Bezoar [Unknown]
  - Dyskinesia [Unknown]

NARRATIVE: CASE EVENT DATE: 20170426
